FAERS Safety Report 7643573-8 (Version None)
Quarter: 2011Q3

REPORT INFORMATION
  Report Type: 
  Country: None (occurrence: None)
  Receive Date: 20110729
  Receipt Date: 20110718
  Transmission Date: 20111222
  Serious: Yes (Life-Threatening, Hospitalization)
  Sender: FDA-Public Use
  Company Number: CH-JNJFOC-20110604154

PATIENT
  Sex: Male
  Weight: 81 kg

DRUGS (8)
  1. ABIRATERONE ACETATE [Suspect]
     Indication: PROSTATE CANCER METASTATIC
     Route: 048
     Dates: start: 20110415
  2. PREDNISONE [Suspect]
     Dosage: 5 MG IN MORNING, 5 MG AT LUNCH TIME, DURING HOSPITALISATION
     Route: 065
     Dates: start: 20110609, end: 20110615
  3. BUPRENORPHINE [Concomitant]
     Indication: PAIN
     Dosage: DOSE: 1/4
     Route: 062
     Dates: start: 20110525
  4. NEXIUM [Concomitant]
     Indication: GASTRITIS
     Route: 048
     Dates: start: 20110107
  5. ABIRATERONE ACETATE [Suspect]
     Route: 048
  6. NEXIUM [Concomitant]
     Indication: DYSPEPSIA
     Route: 048
     Dates: start: 20110107
  7. INSPRA [Concomitant]
     Indication: OEDEMA
     Route: 048
     Dates: start: 20110421
  8. PREDNISONE [Suspect]
     Indication: PROSTATE CANCER METASTATIC
     Route: 065

REACTIONS (3)
  - PULMONARY EMBOLISM [None]
  - DYSPNOEA [None]
  - SYNCOPE [None]
